FAERS Safety Report 5762380-4 (Version None)
Quarter: 2008Q2

REPORT INFORMATION
  Report Type: 
  Country: None (occurrence: None)
  Receive Date: 20080603
  Receipt Date: 20080526
  Transmission Date: 20081010
  Serious: Yes (Death)
  Sender: FDA-Public Use
  Company Number: FABR-1000211

PATIENT
  Age: 60 Year
  Sex: Female
  Weight: 50 kg

DRUGS (5)
  1. FABRAZYME [Suspect]
     Indication: CARDIAC DISORDER
     Dosage: 50 MG, Q2W, INTRAVENOUS
     Route: 042
     Dates: start: 20060623, end: 20080213
  2. FABRAZYME [Suspect]
     Indication: FABRY'S DISEASE
     Dosage: 50 MG, Q2W, INTRAVENOUS
     Route: 042
     Dates: start: 20060623, end: 20080213
  3. FAMOTIDINE [Concomitant]
  4. EPERISONE HYDROCHLORIDE (EPERISONE HYDROCHLORIDE) [Concomitant]
  5. LEVOTHYROXINE (LEVOTHROXINE) [Concomitant]

REACTIONS (11)
  - ALANINE AMINOTRANSFERASE INCREASED [None]
  - ASPARTATE AMINOTRANSFERASE INCREASED [None]
  - BLOOD ALKALINE PHOSPHATASE NORMAL [None]
  - BLOOD BILIRUBIN INCREASED [None]
  - BLOOD CREATININE INCREASED [None]
  - BLOOD LACTATE DEHYDROGENASE INCREASED [None]
  - BLOOD UREA INCREASED [None]
  - CARDIAC FAILURE CHRONIC [None]
  - CONDITION AGGRAVATED [None]
  - DRUG RESISTANCE [None]
  - MULTI-ORGAN FAILURE [None]
